FAERS Safety Report 5369858-6 (Version None)
Quarter: 2007Q2

REPORT INFORMATION
  Report Type: 
  Country: None (occurrence: None)
  Receive Date: 20070621
  Receipt Date: 20070607
  Transmission Date: 20071010
  Serious: Yes (Hospitalization)
  Sender: FDA-Public Use
  Company Number: A-US2007-16128

PATIENT
  Age: 19 Year
  Sex: Female
  Weight: 58.2 kg

DRUGS (5)
  1. MIGLUSTAT CAPSULE 100 MG(MIGLUSTAT) CAPSULE [Suspect]
     Indication: TAY-SACHS DISEASE
     Dosage: SEE IMAGE
     Route: 048
     Dates: start: 20050430
  2. ARIPIPRAZOLE [Concomitant]
  3. XANAX [Concomitant]
  4. LEXAPRO [Concomitant]
  5. MODAFINIL [Concomitant]

REACTIONS (6)
  - ACUTE PSYCHOSIS [None]
  - AGITATION [None]
  - CONFABULATION [None]
  - HALLUCINATIONS, MIXED [None]
  - INSOMNIA [None]
  - PSYCHOMOTOR HYPERACTIVITY [None]
